FAERS Safety Report 16838725 (Version 1)
Quarter: 2019Q3

REPORT INFORMATION
  Report Type: Spontaneous
  Country: US (occurrence: US)
  Receive Date: 20190731
  Receipt Date: 20190731
  Transmission Date: 20191005
  Serious: No
  Sender: FDA-Public Use
  Company Number: None

PATIENT
  Age: 56 Year
  Sex: Male

DRUGS (2)
  1. NO DRUG NAME [Concomitant]
  2. TEMOZOLOMIDE 100MG CAP [Suspect]
     Active Substance: TEMOZOLOMIDE
     Indication: BRAIN NEOPLASM MALIGNANT
     Route: 048
     Dates: start: 201902

REACTIONS (5)
  - Recalled product administered [None]
  - Chills [None]
  - Vomiting [None]
  - Malaise [None]
  - Product quality issue [None]

NARRATIVE: CASE EVENT DATE: 20190731
